FAERS Safety Report 8978884 (Version 2)
Quarter: 2013Q1

REPORT INFORMATION
  Report Type: Spontaneous
  Country: PL (occurrence: PL)
  Receive Date: 20121221
  Receipt Date: 20130107
  Transmission Date: 20140127
  Serious: Yes (Other)
  Sender: FDA-Public Use
  Company Number: PL-RANBAXY-2012RR-63364

PATIENT
  Age: 62 Year
  Sex: Female

DRUGS (8)
  1. DONEPEZIL [Suspect]
     Indication: DEMENTIA ALZHEIMER^S TYPE
     Dosage: 5 MG/DAY
     Route: 065
  2. DONEPEZIL [Suspect]
     Indication: DEMENTIA ALZHEIMER^S TYPE
     Dosage: 10 MG, QD
     Route: 065
     Dates: end: 200808
  3. PARACETAMOL [Concomitant]
     Indication: NASOPHARYNGITIS
     Dosage: UNK
     Route: 065
  4. ASPIRIN [Concomitant]
     Indication: NASOPHARYNGITIS
     Dosage: UNK
     Route: 065
  5. DONEPEZIL [Concomitant]
     Indication: DEMENTIA ALZHEIMER^S TYPE
     Dosage: 5 MG, BID
     Route: 065
  6. DONEPEZIL [Concomitant]
     Indication: DEMENTIA ALZHEIMER^S TYPE
     Dosage: 10 MG IN ONE DOSE
     Route: 065
  7. ASPIRIN [Concomitant]
     Indication: ANTIINFLAMMATORY THERAPY
     Dosage: 1500 MG
     Route: 065
  8. ASCORBIC ACID [Concomitant]
     Indication: ANTIINFLAMMATORY THERAPY
     Dosage: UNK
     Route: 065

REACTIONS (1)
  - Withdrawal syndrome [Recovered/Resolved]
